FAERS Safety Report 11403253 (Version 1)
Quarter: 2015Q3

REPORT INFORMATION
  Report Type: Spontaneous
  Country: US (occurrence: None)
  Receive Date: 20150820
  Receipt Date: 20150820
  Transmission Date: 20151125
  Serious: No
  Sender: FDA-Public Use
  Company Number: None

PATIENT
  Age: 70 Year
  Sex: Female
  Weight: 44.45 kg

DRUGS (7)
  1. VITAMIN D [Concomitant]
     Active Substance: CHOLECALCIFEROL
  2. VITAMIN C [Concomitant]
     Active Substance: ASCORBIC ACID
  3. VIVELLE-DOT [Concomitant]
     Active Substance: ESTRADIOL
  4. HARVONI [Suspect]
     Active Substance: LEDIPASVIR\SOFOSBUVIR
     Indication: CHRONIC HEPATITIS C
     Route: 048
     Dates: start: 20141212, end: 20150306
  5. CALCIUM 500MG + VIT. D3 [Concomitant]
  6. NAGBESUYN [Concomitant]
  7. PROGESTERONE (MICRO) SUPPOSITORIES [Concomitant]

REACTIONS (11)
  - Back pain [None]
  - Impaired driving ability [None]
  - Pain in extremity [None]
  - Neck pain [None]
  - Movement disorder [None]
  - Headache [None]
  - Rash [None]
  - Peripheral swelling [None]
  - Gait disturbance [None]
  - Musculoskeletal pain [None]
  - Nasopharyngitis [None]

NARRATIVE: CASE EVENT DATE: 20141212
